FAERS Safety Report 22394005 (Version 1)
Quarter: 2023Q2

REPORT INFORMATION
  Report Type: Report from Study
  Country: US (occurrence: US)
  Receive Date: 20230601
  Receipt Date: 20230601
  Transmission Date: 20230721
  Serious: Yes (Hospitalization)
  Sender: FDA-Public Use
  Company Number: US-PFIZER INC-PV202300095122

PATIENT
  Age: 31 Year
  Sex: Male

DRUGS (1)
  1. IBRANCE [Suspect]
     Active Substance: PALBOCICLIB
     Indication: Malignant peritoneal neoplasm
     Dosage: 125 MG, CYCLIC (125 MG TABLET ONCE DAILY FOR 21 DAYS ON AND 7 OFF)
     Route: 048
     Dates: start: 202304

REACTIONS (4)
  - Liver disorder [Unknown]
  - Nausea [Recovered/Resolved]
  - Malaise [Unknown]
  - Off label use [Unknown]

NARRATIVE: CASE EVENT DATE: 20230101
